FAERS Safety Report 21088595 (Version 1)
Quarter: 2022Q3

REPORT INFORMATION
  Report Type: Spontaneous
  Country: GR (occurrence: GR)
  Receive Date: 20220715
  Receipt Date: 20220715
  Transmission Date: 20221026
  Serious: Yes (Hospitalization, Other)
  Sender: FDA-Public Use
  Company Number: GR-GlaxoSmithKline-B0868138A

PATIENT
  Age: 41 Year
  Sex: Male

DRUGS (1)
  1. CEFUROXIME [Suspect]
     Active Substance: CEFUROXIME
     Indication: Upper respiratory tract infection
     Dosage: UNK
     Route: 065

REACTIONS (14)
  - Anaphylactic shock [Unknown]
  - Kounis syndrome [Unknown]
  - Electrocardiogram ST segment elevation [Recovered/Resolved]
  - Pruritus [Unknown]
  - Rash [Unknown]
  - Dyspnoea [Unknown]
  - Dizziness [Unknown]
  - Prolonged expiration [Unknown]
  - Eosinophilia [Unknown]
  - Neutrophilia [Unknown]
  - Hyperglycaemia [Unknown]
  - Wheezing [Unknown]
  - Hypotension [Unknown]
  - Shock [Unknown]
